FAERS Safety Report 11209246 (Version 9)
Quarter: 2018Q2

REPORT INFORMATION
  Report Type: Report from Study
  Country: DE (occurrence: DE)
  Receive Date: 20150622
  Receipt Date: 20180516
  Transmission Date: 20180711
  Serious: Yes (Other)
  Sender: FDA-Public Use
  Company Number: PHHY2015DE042335

PATIENT
  Age: 48 Year
  Sex: Female

DRUGS (7)
  1. ENOXAPARIN [Concomitant]
     Active Substance: ENOXAPARIN
     Indication: THROMBOSIS PROPHYLAXIS
     Dosage: UNK
     Route: 065
     Dates: start: 20160112, end: 20160114
  2. PREDNISOLUT [Concomitant]
     Active Substance: PREDNISOLONE
     Indication: MULTIPLE SCLEROSIS RELAPSE
     Dosage: 1000 MG, UNK
     Route: 065
     Dates: start: 20160112, end: 20160114
  3. GILENYA [Suspect]
     Active Substance: FINGOLIMOD HYDROCHLORIDE
     Indication: MULTIPLE SCLEROSIS
     Dosage: 0.5 MG, QD
     Route: 048
     Dates: start: 20141113, end: 20171112
  4. VENLAFAXINE [Concomitant]
     Active Substance: VENLAFAXINE HYDROCHLORIDE
     Indication: FATIGUE
     Dosage: 37.5 MG, QD
     Route: 065
     Dates: start: 20100426
  5. GILENYA [Suspect]
     Active Substance: FINGOLIMOD HYDROCHLORIDE
     Dosage: UNK UNK, QD
     Route: 048
     Dates: start: 20171113
  6. CLEXANE [Concomitant]
     Active Substance: ENOXAPARIN SODIUM
     Indication: THROMBOSIS PROPHYLAXIS
     Dosage: UNK
     Route: 065
     Dates: start: 20160112, end: 20160114
  7. CLEXANE [Concomitant]
     Active Substance: ENOXAPARIN SODIUM
     Indication: MULTIPLE SCLEROSIS RELAPSE

REACTIONS (9)
  - Alanine aminotransferase increased [Unknown]
  - White blood cell count decreased [Not Recovered/Not Resolved]
  - Gamma-glutamyltransferase increased [Not Recovered/Not Resolved]
  - Muscle spasticity [Unknown]
  - Aspartate aminotransferase increased [Unknown]
  - Multiple sclerosis relapse [Recovered/Resolved]
  - Lymphocyte percentage decreased [Unknown]
  - Glaucoma [Unknown]
  - Type 2 diabetes mellitus [Recovered/Resolved]

NARRATIVE: CASE EVENT DATE: 20141211
